FAERS Safety Report 9135208 (Version 3)
Quarter: 2014Q2

REPORT INFORMATION
  Report Type: Report from Study
  Country: US (occurrence: US)
  Receive Date: 20130304
  Receipt Date: 20140428
  Transmission Date: 20141212
  Serious: Yes (Death, Hospitalization, Other)
  Sender: FDA-Public Use
  Company Number: US-ALEXION-A201300330

PATIENT
  Sex: Male

DRUGS (1)
  1. SOLIRIS [Suspect]
     Indication: PAROXYSMAL NOCTURNAL HAEMOGLOBINURIA
     Dosage: UNK
     Route: 042

REACTIONS (8)
  - Neoplasm malignant [Fatal]
  - Renal failure [Unknown]
  - Cardiac failure congestive [Unknown]
  - Anaemia [Unknown]
  - Myelodysplastic syndrome [Unknown]
  - Dyspnoea [Unknown]
  - Feeling abnormal [Unknown]
  - Fatigue [Unknown]
